FAERS Safety Report 4712699-0 (Version None)
Quarter: 2005Q3

REPORT INFORMATION
  Report Type: 
  Country: None (occurrence: None)
  Receive Date: 20050707
  Receipt Date: 20050513
  Transmission Date: 20060218
  Serious: Yes (Other)
  Sender: FDA-Public Use
  Company Number: 2005076081

PATIENT
  Age: 57 Year
  Sex: Male
  Weight: 81.6475 kg

DRUGS (1)
  1. CAVERJECT [Suspect]
     Indication: ERECTILE DYSFUNCTION
     Dosage: UNKNOWN (20 MCG), INTRACAVERNOSA
     Route: 017
     Dates: start: 20050101

REACTIONS (3)
  - DRUG INEFFECTIVE [None]
  - ERECTION INCREASED [None]
  - INTENTIONAL MISUSE [None]
